FAERS Safety Report 5227091-2 (Version None)
Quarter: 2007Q1

REPORT INFORMATION
  Report Type: 
  Country: None (occurrence: None)
  Receive Date: 20070202
  Receipt Date: 20070123
  Transmission Date: 20070707
  Serious: Yes (Other)
  Sender: FDA-Public Use
  Company Number: 2007UW01384

PATIENT
  Age: 36 Year
  Sex: Female
  Weight: 63.5 kg

DRUGS (6)
  1. ARIMIDEX [Suspect]
     Indication: BREAST CANCER
     Route: 048
     Dates: start: 20061208
  2. ADRIAMYCIN PFS [Concomitant]
     Indication: BREAST CANCER
  3. CYTOXAN [Concomitant]
     Indication: BREAST CANCER
  4. HERCEPTIN [Concomitant]
     Indication: BREAST CANCER
     Dates: end: 20070116
  5. TAXOTERE [Concomitant]
     Indication: BREAST CANCER
  6. RADIATION THERAPY [Concomitant]
     Indication: BREAST CANCER
     Dates: start: 20060501, end: 20060601

REACTIONS (5)
  - ARTHRALGIA [None]
  - ARTHROPATHY [None]
  - FATIGUE [None]
  - HYPOAESTHESIA FACIAL [None]
  - SENSATION OF HEAVINESS [None]
